FAERS Safety Report 4371039-X (Version None)
Quarter: 2004Q2

REPORT INFORMATION
  Report Type: 
  Country: None (occurrence: None)
  Receive Date: 20040604
  Receipt Date: 20040421
  Transmission Date: 20050107
  Serious: Yes (Other)
  Sender: FDA-Public Use
  Company Number: US-MERCK-0405USA01922

PATIENT
  Age: 70 Year
  Sex: Male
  Weight: 71 kg

DRUGS (2)
  1. MEVACOR [Suspect]
     Route: 048
     Dates: start: 19890801, end: 19960101
  2. MEVACOR [Suspect]
     Route: 048
     Dates: start: 19961003, end: 19970101

REACTIONS (12)
  - ANXIETY [None]
  - BALANCE DISORDER [None]
  - CHRONIC OBSTRUCTIVE AIRWAYS DISEASE [None]
  - COGNITIVE DISORDER [None]
  - CONDITION AGGRAVATED [None]
  - CORONARY ARTERY DISEASE [None]
  - DEPRESSION [None]
  - DIABETES MELLITUS NON-INSULIN-DEPENDENT [None]
  - DIABETIC NEUROPATHY [None]
  - DIARRHOEA [None]
  - PERIPHERAL VASCULAR DISORDER [None]
  - URINE FLOW DECREASED [None]
